FAERS Safety Report 7636759-X (Version None)
Quarter: 2011Q3

REPORT INFORMATION
  Report Type: 
  Country: None (occurrence: None)
  Receive Date: 20110722
  Receipt Date: 20110722
  Transmission Date: 20111222
  Serious: No
  Sender: FDA-Public Use
  Company Number: None

PATIENT
  Sex: Male
  Weight: 63.5036 kg

DRUGS (2)
  1. PRADAXA [Suspect]
     Indication: COAGULOPATHY
     Dosage: 150MG 2 TIMES/DAY ORALLY
     Route: 048
     Dates: start: 20110413, end: 20110628
  2. PRADAXA [Suspect]
     Indication: ATRIAL FIBRILLATION
     Dosage: 150MG 2 TIMES/DAY ORALLY
     Route: 048
     Dates: start: 20110413, end: 20110628

REACTIONS (7)
  - DYSPEPSIA [None]
  - IRRITABILITY [None]
  - MUSCLE SPASMS [None]
  - MENTAL STATUS CHANGES [None]
  - ASTHENIA [None]
  - DECREASED APPETITE [None]
  - WEIGHT DECREASED [None]
